FAERS Safety Report 13604131 (Version 1)
Quarter: 2017Q2

REPORT INFORMATION
  Report Type: Spontaneous
  Country: US (occurrence: US)
  Receive Date: 20170602
  Receipt Date: 20170602
  Transmission Date: 20170830
  Serious: No
  Sender: FDA-Public Use
  Company Number: US-NOVEN PHARMACEUTICALS, INC.-US2016001156

PATIENT

DRUGS (5)
  1. DAYTRANA [Suspect]
     Active Substance: METHYLPHENIDATE
     Dosage: 40 MG, QD
     Route: 062
     Dates: end: 20160522
  2. CLONIDINE. [Concomitant]
     Active Substance: CLONIDINE
  3. PAROXETINE. [Concomitant]
     Active Substance: PAROXETINE
  4. DAYTRANA [Suspect]
     Active Substance: METHYLPHENIDATE
     Indication: ATTENTION DEFICIT/HYPERACTIVITY DISORDER
     Dosage: 40 MG, QD
     Route: 062
     Dates: start: 2011, end: 201512
  5. RISPERIDONE. [Concomitant]
     Active Substance: RISPERIDONE

REACTIONS (5)
  - Prescribed overdose [Recovered/Resolved]
  - No adverse event [Unknown]
  - Off label use [Unknown]
  - Wrong technique in product usage process [Recovered/Resolved]
  - Drug dose omission [Recovered/Resolved]

NARRATIVE: CASE EVENT DATE: 2011
